FAERS Safety Report 16116419 (Version 1)
Quarter: 2019Q1

REPORT INFORMATION
  Report Type: Other
  Country: GB (occurrence: GB)
  Receive Date: 20190326
  Receipt Date: 20190326
  Transmission Date: 20190418
  Serious: Yes (Hospitalization, Disabling, Other)
  Sender: FDA-Public Use
  Company Number: GB-LUPIN PHARMACEUTICALS INC.-2019-01680

PATIENT
  Age: 20 Year
  Sex: Female
  Weight: 46.26 kg

DRUGS (1)
  1. MAEXENI FILM COATED TABLETS [Suspect]
     Active Substance: ETHINYL ESTRADIOL\LEVONORGESTREL
     Indication: CONTRACEPTION
     Dosage: UNK
     Route: 048
     Dates: start: 201807, end: 201901

REACTIONS (6)
  - Abnormal loss of weight [Unknown]
  - Fatigue [Unknown]
  - Hepatic function abnormal [Recovered/Resolved]
  - Nausea [Unknown]
  - Vomiting [Unknown]
  - Jaundice [Unknown]

NARRATIVE: CASE EVENT DATE: 20181122
